FAERS Safety Report 11006914 (Version 1)
Quarter: 2015Q2

REPORT INFORMATION
  Report Type: Spontaneous
  Country: US (occurrence: US)
  Receive Date: 20150409
  Receipt Date: 20150409
  Transmission Date: 20150821
  Serious: No
  Sender: FDA-Public Use
  Company Number: US-ALLERGAN-1419877US

PATIENT
  Age: 59 Year
  Sex: Female

DRUGS (3)
  1. FLONASE [Concomitant]
     Active Substance: FLUTICASONE PROPIONATE
  2. LATISSE [Suspect]
     Active Substance: BIMATOPROST
     Indication: GROWTH OF EYELASHES
     Route: 061
  3. KLONOPIN [Concomitant]
     Active Substance: CLONAZEPAM
     Route: 048

REACTIONS (1)
  - Eye irritation [Unknown]
